FAERS Safety Report 12434226 (Version 1)
Quarter: 2016Q2

REPORT INFORMATION
  Report Type: Spontaneous
  Country: US (occurrence: US)
  Receive Date: 20160603
  Receipt Date: 20160603
  Transmission Date: 20160815
  Serious: No
  Sender: FDA-Public Use
  Company Number: US-TEVA-663015USA

PATIENT
  Age: 49 Year
  Sex: Male

DRUGS (4)
  1. LYRICA [Concomitant]
     Active Substance: PREGABALIN
     Indication: NEURALGIA
  2. NORVASC [Concomitant]
     Active Substance: AMLODIPINE BESYLATE
  3. CELEBREX [Concomitant]
     Active Substance: CELECOXIB
  4. NUVIGIL [Suspect]
     Active Substance: ARMODAFINIL
     Route: 048

REACTIONS (3)
  - Drug hypersensitivity [Unknown]
  - Nausea [Unknown]
  - Vomiting [Unknown]

NARRATIVE: CASE EVENT DATE: 20140514
